FAERS Safety Report 23913438 (Version 2)
Quarter: 2024Q3

REPORT INFORMATION
  Report Type: Report from Study
  Country: CA (occurrence: CA)
  Receive Date: 20240529
  Receipt Date: 20240819
  Transmission Date: 20241016
  Serious: Yes (Hospitalization, Other)
  Sender: JOHNSON AND JOHNSON
  Company Number: CA-JNJFOC-20240209821

PATIENT
  Age: 52 Year
  Sex: Female

DRUGS (18)
  1. SIMPONI [Suspect]
     Active Substance: GOLIMUMAB
     Indication: Rheumatoid arthritis
     Route: 041
     Dates: start: 20230731
  2. SIMPONI [Suspect]
     Active Substance: GOLIMUMAB
     Dosage: THERAPY GIVEN ON 30/JUL/2023
     Route: 041
  3. NABILONE [Concomitant]
     Active Substance: NABILONE
  4. DULOXETINE [Concomitant]
     Active Substance: DULOXETINE
  5. CHOLECALCIFEROL [Concomitant]
     Active Substance: CHOLECALCIFEROL
  6. ZOPICLONE [Concomitant]
     Active Substance: ZOPICLONE
  7. CYCLOBENZAPRINE [Concomitant]
     Active Substance: CYCLOBENZAPRINE
  8. SULFASALAZINE [Concomitant]
     Active Substance: SULFASALAZINE
  9. HYDROXYCHLOROQUINE [Concomitant]
     Active Substance: HYDROXYCHLOROQUINE
  10. GABAPENTIN [Concomitant]
     Active Substance: GABAPENTIN
  11. AZATHIOPRINE [Concomitant]
     Active Substance: AZATHIOPRINE
  12. ESOMEPRAZOLE [Concomitant]
     Active Substance: ESOMEPRAZOLE
  13. MAGNESIUM [Concomitant]
     Active Substance: MAGNESIUM
  14. PROLIA [Concomitant]
     Active Substance: DENOSUMAB
  15. ESTROGEL [Concomitant]
     Active Substance: ESTRADIOL
  16. MIRTAZAPINE [Concomitant]
     Active Substance: MIRTAZAPINE
  17. HYDROMORPHONE [Concomitant]
     Active Substance: HYDROMORPHONE
  18. BOTOX [Concomitant]
     Active Substance: ONABOTULINUMTOXINA
     Indication: Migraine

REACTIONS (2)
  - Cystitis [Recovered/Resolved]
  - Fibromyalgia [Not Recovered/Not Resolved]
